FAERS Safety Report 8092628-5 (Version None)
Quarter: 2012Q1

REPORT INFORMATION
  Report Type: 
  Country: None (occurrence: None)
  Receive Date: 20120128
  Receipt Date: 20110725
  Transmission Date: 20120608
  Serious: No
  Sender: FDA-Public Use
  Company Number: US-ABBOTT-11P-163-0841618-00

PATIENT
  Age: 51 Year
  Sex: Female

DRUGS (3)
  1. FE [Concomitant]
     Indication: PRODUCT USED FOR UNKNOWN INDICATION
  2. MULTI-VITAMINS [Concomitant]
     Indication: PRODUCT USED FOR UNKNOWN INDICATION
  3. HUMIRA [Suspect]
     Indication: COLITIS ULCERATIVE
     Dosage: (160 MG LOADING DOSE, INTERRUPTED)
     Dates: start: 20110210, end: 20110211

REACTIONS (1)
  - INJECTION SITE PAIN [None]
